FAERS Safety Report 9467656 (Version 1)
Quarter: 2013Q3

REPORT INFORMATION
  Report Type: Spontaneous
  Country: US (occurrence: None)
  Receive Date: 20130819
  Receipt Date: 20130819
  Transmission Date: 20140515
  Serious: Yes (Disabling)
  Sender: FDA-Public Use
  Company Number: None

PATIENT
  Age: 41 Year
  Sex: Female
  Weight: 56.25 kg

DRUGS (1)
  1. CIPRO [Suspect]
     Indication: KIDNEY INFECTION
     Dosage: 500MG  TWICE DAILY  TAKEN BY MOUTH
     Route: 048

REACTIONS (23)
  - Adverse drug reaction [None]
  - Urinary tract infection [None]
  - Pain [None]
  - Chondropathy [None]
  - Facet joint syndrome [None]
  - Spondylitis [None]
  - Neuropathy peripheral [None]
  - Influenza like illness [None]
  - Choking [None]
  - Throat tightness [None]
  - Retching [None]
  - Feeling abnormal [None]
  - Nausea [None]
  - Weight decreased [None]
  - Anxiety [None]
  - Depression [None]
  - Rhabdomyolysis [None]
  - Chills [None]
  - Pyrexia [None]
  - Peripheral coldness [None]
  - Hypoaesthesia [None]
  - Toxicity to various agents [None]
  - Stress [None]
